FAERS Safety Report 15333195 (Version 1)
Quarter: 2018Q3

REPORT INFORMATION
  Report Type: Spontaneous
  Country: US (occurrence: US)
  Receive Date: 20180830
  Receipt Date: 20180830
  Transmission Date: 20181010
  Serious: No
  Sender: FDA-Public Use
  Company Number: US-BRISTOL-MYERS SQUIBB COMPANY-BMS-2018-079432

PATIENT
  Sex: Female
  Weight: 119.6 kg

DRUGS (1)
  1. YERVOY [Suspect]
     Active Substance: IPILIMUMAB
     Indication: METASTATIC MALIGNANT MELANOMA
     Dosage: 1000 MG, Q3WK (EVERY 21 DAYS FOR 4 DOSES THEN EVERY 3 MONTHS AFTER THAT)
     Route: 065
     Dates: start: 20160930

REACTIONS (1)
  - Weight fluctuation [Unknown]
